FAERS Safety Report 5259902-9 (Version None)
Quarter: 2007Q1

REPORT INFORMATION
  Report Type: 
  Country: None (occurrence: None)
  Receive Date: 20070307
  Receipt Date: 20070227
  Transmission Date: 20070707
  Serious: Yes (Disabling, Other)
  Sender: FDA-Public Use
  Company Number: 002#2#2007-00049

PATIENT
  Age: 54 Year
  Sex: Female
  Weight: 249.4784 kg

DRUGS (6)
  1. REGLAN [Suspect]
     Indication: IMPAIRED GASTRIC EMPTYING
     Dosage: ORAL
     Route: 048
     Dates: start: 19990101, end: 20020101
  2. FLUOXETINE [Concomitant]
  3. DILTIAZEM HYDROCHLORIDE [Concomitant]
  4. OXYGEN [Concomitant]
  5. VITAMIN E [Concomitant]
  6. MANY CONCOMITANT DRUGS [Concomitant]

REACTIONS (8)
  - ANXIETY [None]
  - DYSPNOEA [None]
  - EYELID FUNCTION DISORDER [None]
  - FEELING ABNORMAL [None]
  - IMMOBILE [None]
  - MOVEMENT DISORDER [None]
  - TARDIVE DYSKINESIA [None]
  - TREMOR [None]
